FAERS Safety Report 10724498 (Version 1)
Quarter: 2015Q1

REPORT INFORMATION
  Report Type: Spontaneous
  Country: US (occurrence: None)
  Receive Date: 20150116
  Receipt Date: 20150116
  Transmission Date: 20150721
  Serious: Yes (Hospitalization)
  Sender: FDA-Public Use
  Company Number: None

PATIENT
  Age: 42 Year
  Sex: Female
  Weight: 61.24 kg

DRUGS (8)
  1. BACLOFEN 10MG QUALITEST [Suspect]
     Active Substance: BACLOFEN
     Indication: JOINT INJURY
     Route: 048
     Dates: start: 20140603, end: 20140604
  2. DEXAMETHASON DEX [Concomitant]
  3. IBUPROFEN. [Concomitant]
     Active Substance: IBUPROFEN
  4. FLEXERIL [Concomitant]
     Active Substance: CYCLOBENZAPRINE HYDROCHLORIDE
  5. TRAMADOL HCL [Concomitant]
     Active Substance: TRAMADOL HYDROCHLORIDE
  6. BENADRYL [Concomitant]
     Active Substance: DIPHENHYDRAMINE HYDROCHLORIDE
  7. BACLOFEN 10MG QUALITEST [Suspect]
     Active Substance: BACLOFEN
     Indication: MUSCLE SPASMS
     Route: 048
     Dates: start: 20140603, end: 20140604
  8. BACLOFEN 10MG QUALITEST [Suspect]
     Active Substance: BACLOFEN
     Indication: BACK INJURY
     Route: 048
     Dates: start: 20140603, end: 20140604

REACTIONS (15)
  - Arthralgia [None]
  - Dyspnoea [None]
  - Vomiting [None]
  - Blood pressure increased [None]
  - Cognitive disorder [None]
  - Muscle spasms [None]
  - Tremor [None]
  - Diplopia [None]
  - Hallucination, visual [None]
  - Heart rate increased [None]
  - Feeling abnormal [None]
  - Chest pain [None]
  - Swelling [None]
  - Gait disturbance [None]
  - Confusional state [None]

NARRATIVE: CASE EVENT DATE: 20140604
